FAERS Safety Report 8803744 (Version 1)
Quarter: 2012Q4

REPORT INFORMATION
  Report Type: 
  Country: US (occurrence: US)
  Receive Date: 20120924
  Receipt Date: 20120924
  Transmission Date: 20130627
  Serious: Yes (Other)
  Sender: FDA-Public Use
  Company Number: US-TEVA-359642USA

PATIENT
  Sex: Male

DRUGS (1)
  1. SURMONTIL [Suspect]
     Indication: DEPRESSION

REACTIONS (8)
  - Aphasia [Unknown]
  - Hypersomnia [Unknown]
  - Dizziness [Unknown]
  - Confusional state [Unknown]
  - Thinking abnormal [Unknown]
  - Disorientation [Unknown]
  - Hypophagia [Unknown]
  - Drug ineffective [Unknown]
